FAERS Safety Report 6177825-8 (Version None)
Quarter: 2009Q2

REPORT INFORMATION
  Report Type: 
  Country: None (occurrence: None)
  Receive Date: 20090504
  Receipt Date: 20090108
  Transmission Date: 20091009
  Serious: No
  Sender: FDA-Public Use
  Company Number: US-ALEXION-A200900020

PATIENT
  Sex: Female

DRUGS (13)
  1. SOLIRIS [Suspect]
     Indication: PAROXYSMAL NOCTURNAL HAEMOGLOBINURIA
     Dosage: 600 MG, QW
     Route: 042
     Dates: start: 20080414, end: 20080505
  2. SOLIRIS [Suspect]
     Dosage: 900 MG, Q2W
     Route: 042
     Dates: start: 20080512
  3. PREDNISONE [Concomitant]
     Dosage: 5 MG, UNK
     Route: 048
  4. FOLIC ACID [Concomitant]
     Dosage: UNK
     Route: 048
  5. POTASSIUM CHLORIDE [Concomitant]
     Dosage: UNK
     Route: 048
  6. REPLIVA [Concomitant]
     Dosage: UNK
     Route: 048
  7. ACCUPRIL [Concomitant]
     Dosage: UNK
     Route: 048
  8. ZOLOFT [Concomitant]
     Dosage: UNK
     Route: 048
  9. HUMALOG [Concomitant]
     Dosage: UNK
  10. LANTUS [Concomitant]
     Dosage: UNK
  11. ALPHAGAN                           /01341101/ [Concomitant]
     Indication: GLAUCOMA
     Dosage: UNK
     Route: 031
  12. XALATAN [Concomitant]
     Indication: GLAUCOMA
     Dosage: UNK
     Route: 031
  13. TRAZODONE HCL [Concomitant]
     Dosage: UNK
     Route: 048

REACTIONS (1)
  - ANAEMIA [None]
